FAERS Safety Report 8602224-6 (Version None)
Quarter: 2012Q3

REPORT INFORMATION
  Report Type: 
  Country: None (occurrence: None)
  Receive Date: 20120817
  Receipt Date: 20120810
  Transmission Date: 20120928
  Serious: Yes (Other)
  Sender: FDA-Public Use
  Company Number: US-PFIZER INC-2012134127

PATIENT
  Age: 47 Year
  Sex: Male

DRUGS (5)
  1. NEURONTIN [Concomitant]
  2. VIAGRA [Suspect]
     Indication: ORGANIC ERECTILE DYSFUNCTION
     Dosage: 100 MG, 1 TAB AS NEEDED
     Route: 048
     Dates: start: 19970101
  3. CYMBALTA [Concomitant]
  4. OMEPRAZOLE [Concomitant]
  5. TYLENOL [Concomitant]

REACTIONS (1)
  - FOOT FRACTURE [None]
